FAERS Safety Report 4856307-7 (Version None)
Quarter: 2005Q4

REPORT INFORMATION
  Report Type: 
  Country: None (occurrence: None)
  Receive Date: 20051219
  Receipt Date: 20051206
  Transmission Date: 20060501
  Serious: Yes (Other)
  Sender: FDA-Public Use
  Company Number: CA-JNJFOC-20051201759

PATIENT
  Sex: Female
  Weight: 63 kg

DRUGS (2)
  1. REMICADE [Suspect]
     Route: 042
  2. REMICADE [Suspect]
     Indication: RHEUMATOID ARTHRITIS
     Dosage: THIS WAS PATIENT'S SECOND INFUSION.
     Route: 042

REACTIONS (8)
  - ANXIETY [None]
  - BODY TEMPERATURE INCREASED [None]
  - CHILLS [None]
  - CYANOSIS [None]
  - FEELING COLD [None]
  - HEADACHE [None]
  - INFUSION RELATED REACTION [None]
  - PRURITUS [None]
